FAERS Safety Report 9003692 (Version 1)
Quarter: 2013Q1

REPORT INFORMATION
  Report Type: Spontaneous
  Country: US (occurrence: US)
  Receive Date: 20130108
  Receipt Date: 20130108
  Transmission Date: 20140127
  Serious: No
  Sender: FDA-Public Use
  Company Number: US-GLAXOSMITHKLINE-A0962433A

PATIENT
  Age: 39 Year
  Sex: Female

DRUGS (12)
  1. LOVAZA [Suspect]
     Indication: HYPERLIPIDAEMIA
     Dosage: 2CAPL TWICE PER DAY
     Route: 048
     Dates: start: 20111027
  2. SERTRALINE [Concomitant]
  3. ASPIRIN [Concomitant]
  4. SIMVASTATIN [Concomitant]
  5. PROVENTIL [Concomitant]
  6. JANUVIA [Concomitant]
  7. BYETTA [Concomitant]
  8. LOSARTAN [Concomitant]
  9. AMLODIPINE [Concomitant]
  10. TRILIPIX [Concomitant]
  11. NIACIN [Concomitant]
  12. VITAMIN D3 [Concomitant]

REACTIONS (1)
  - Medication residue present [Unknown]
